FAERS Safety Report 7567977-7 (Version None)
Quarter: 2011Q2

REPORT INFORMATION
  Report Type: 
  Country: None (occurrence: None)
  Receive Date: 20110623
  Receipt Date: 20110620
  Transmission Date: 20111010
  Serious: Yes (Death, Hospitalization)
  Sender: FDA-Public Use
  Company Number: DE-GENZYME-RENA-1001150

PATIENT
  Sex: Female
  Weight: 52 kg

DRUGS (26)
  1. BONDIOL [Concomitant]
     Indication: PRODUCT USED FOR UNKNOWN INDICATION
  2. BICANORM [Concomitant]
     Indication: PRODUCT USED FOR UNKNOWN INDICATION
  3. PANTOPRAZOLE [Concomitant]
     Indication: PRODUCT USED FOR UNKNOWN INDICATION
  4. XIPAMID [Concomitant]
     Indication: PRODUCT USED FOR UNKNOWN INDICATION
  5. ALISKIREN [Concomitant]
     Indication: PRODUCT USED FOR UNKNOWN INDICATION
  6. MCP [Concomitant]
     Indication: PRODUCT USED FOR UNKNOWN INDICATION
  7. VITADRAL [Concomitant]
     Indication: PRODUCT USED FOR UNKNOWN INDICATION
  8. RENVELA [Suspect]
     Indication: HYPERPHOSPHATAEMIA
     Dosage: 3 SACHETS/DAY
     Route: 048
     Dates: start: 20090720, end: 20100416
  9. RENVELA [Suspect]
     Dosage: 2.4 G, QD
     Route: 048
     Dates: start: 20091130, end: 20100416
  10. MOXONIDIN [Concomitant]
     Indication: PRODUCT USED FOR UNKNOWN INDICATION
  11. ERYPO [Concomitant]
     Indication: PRODUCT USED FOR UNKNOWN INDICATION
  12. ANTI-KALIUM [Concomitant]
     Indication: PRODUCT USED FOR UNKNOWN INDICATION
  13. FENISTIL [Concomitant]
     Indication: PRODUCT USED FOR UNKNOWN INDICATION
  14. SUMATRIPTAN SUCCINATE [Concomitant]
     Indication: PRODUCT USED FOR UNKNOWN INDICATION
  15. PRAVASTATIN [Concomitant]
     Indication: PRODUCT USED FOR UNKNOWN INDICATION
  16. TRAMADOL HYDROCHLORIDE [Concomitant]
     Indication: PRODUCT USED FOR UNKNOWN INDICATION
  17. TORSEMIDE [Concomitant]
     Indication: PRODUCT USED FOR UNKNOWN INDICATION
  18. DILZEM [Concomitant]
     Indication: PRODUCT USED FOR UNKNOWN INDICATION
  19. EBRANTIL [Concomitant]
     Indication: PRODUCT USED FOR UNKNOWN INDICATION
  20. DEXA BICIRON [Concomitant]
     Indication: PRODUCT USED FOR UNKNOWN INDICATION
  21. VIVIDRIN AKUT [Concomitant]
     Indication: PRODUCT USED FOR UNKNOWN INDICATION
  22. DEDREI [Concomitant]
     Indication: PRODUCT USED FOR UNKNOWN INDICATION
  23. CARVEDILOL SANDOZ [Concomitant]
     Indication: PRODUCT USED FOR UNKNOWN INDICATION
  24. MICARDIS [Concomitant]
     Indication: PRODUCT USED FOR UNKNOWN INDICATION
  25. LYRICA [Concomitant]
     Indication: PRODUCT USED FOR UNKNOWN INDICATION
  26. DREISAVIT N [Concomitant]
     Indication: PRODUCT USED FOR UNKNOWN INDICATION

REACTIONS (2)
  - ARRHYTHMIA [None]
  - ACUTE MYOCARDIAL INFARCTION [None]
